FAERS Safety Report 7441008-1 (Version None)
Quarter: 2011Q2

REPORT INFORMATION
  Report Type: 
  Country: None (occurrence: None)
  Receive Date: 20110427
  Receipt Date: 20110415
  Transmission Date: 20111010
  Serious: Yes (Death)
  Sender: FDA-Public Use
  Company Number: FR-GENENTECH-317247

PATIENT
  Sex: Male

DRUGS (32)
  1. ENDOXAN [Suspect]
     Dosage: 1200 MG, UNK
     Route: 065
     Dates: start: 20071112
  2. ENDOXAN [Suspect]
     Dosage: 1200 MG, UNK
     Route: 065
     Dates: start: 20080212
  3. ETOPOSIDE [Suspect]
     Dosage: 120 MG, UNK
     Route: 065
     Dates: start: 20080304
  4. DOXORUBICINE [Suspect]
     Dosage: 50 MG, UNK
     Route: 065
     Dates: start: 20080212
  5. SOLU-MEDROL [Suspect]
     Dosage: 80 MG, UNK
     Route: 065
     Dates: start: 20080304
  6. CARMUSTINE [Suspect]
     Indication: LYMPHOMA
     Dosage: 600 MG, UNK
     Route: 065
     Dates: start: 20080423
  7. ENDOXAN [Suspect]
     Indication: LYMPHOMA
     Dosage: 1200 MG, UNK
     Route: 065
     Dates: start: 20071009
  8. ETOPOSIDE [Suspect]
     Dosage: 1600 MG, UNK
     Route: 065
     Dates: start: 20080423
  9. SOLU-MEDROL [Suspect]
     Dosage: 80 MG, UNK
     Route: 065
     Dates: start: 20071213
  10. ENDOXAN [Suspect]
     Dosage: 1200 MG, UNK
     Route: 065
     Dates: start: 20071213
  11. ETOPOSIDE [Suspect]
     Indication: LYMPHOMA
     Dosage: 120 MG, UNK
     Route: 065
     Dates: start: 20071009
  12. DOXORUBICINE [Suspect]
     Dosage: 50 MG, UNK
     Route: 065
     Dates: start: 20080118
  13. SOLU-MEDROL [Suspect]
     Indication: LYMPHOMA
     Dosage: 80 MG, UNK
     Route: 065
     Dates: start: 20071009
  14. RITUXIMAB [Suspect]
     Dosage: 750 MG, UNK
     Route: 042
     Dates: start: 20071213
  15. ETOPOSIDE [Suspect]
     Dosage: 120 MG, UNK
     Route: 065
     Dates: start: 20071112
  16. ETOPOSIDE [Suspect]
     Dosage: 120 MG, UNK
     Route: 065
     Dates: start: 20080118
  17. ETOPOSIDE [Suspect]
     Dosage: 120 MG, UNK
     Route: 065
     Dates: start: 20080212
  18. DOXORUBICINE [Suspect]
     Indication: LYMPHOMA
     Dosage: 50 MG, UNK
     Route: 065
     Dates: start: 20071009
  19. SOLU-MEDROL [Suspect]
     Dosage: 80 MG, UNK
     Route: 065
     Dates: start: 20080118
  20. RITUXIMAB [Suspect]
     Dosage: 750 MG, UNK
     Route: 042
     Dates: start: 20071009
  21. ENDOXAN [Suspect]
     Dosage: 1200 MG, UNK
     Route: 065
     Dates: start: 20080118
  22. DOXORUBICINE [Suspect]
     Dosage: 50 MG, UNK
     Route: 065
     Dates: start: 20071213
  23. SOLU-MEDROL [Suspect]
     Dosage: 80 MG, UNK
     Route: 065
     Dates: start: 20071112
  24. RITUXIMAB [Suspect]
     Indication: LYMPHOMA
     Dosage: UNK
     Route: 042
  25. RITUXIMAB [Suspect]
     Dosage: 750 MG, UNK
     Route: 042
     Dates: start: 20071112
  26. ENDOXAN [Suspect]
     Dosage: 1200 MG, UNK
     Route: 065
     Dates: start: 20080304
  27. ETOPOSIDE [Suspect]
     Dosage: 120 MG, UNK
     Route: 065
     Dates: start: 20071213
  28. SOLU-MEDROL [Suspect]
     Dosage: 80 MG, UNK
     Route: 065
     Dates: start: 20080212
  29. ARACYTINE [Suspect]
     Indication: LYMPHOMA
     Dosage: 3200 MG, UNK
     Route: 065
     Dates: start: 20080423
  30. MELPHALAN [Suspect]
     Indication: LYMPHOMA
     Dosage: 240 MG, UNK
     Route: 065
     Dates: start: 20080423
  31. DOXORUBICINE [Suspect]
     Dosage: 50 MG, UNK
     Route: 065
     Dates: start: 20071112
  32. DOXORUBICINE [Suspect]
     Dosage: 50 MG, UNK
     Route: 065
     Dates: start: 20080304

REACTIONS (2)
  - LYMPHOMA [None]
  - HERPES ZOSTER [None]
